FAERS Safety Report 5104915-0 (Version None)
Quarter: 2006Q3

REPORT INFORMATION
  Report Type: 
  Country: None (occurrence: None)
  Receive Date: 20060911
  Receipt Date: 20060911
  Transmission Date: 20061208
  Serious: Yes (Hospitalization)
  Sender: FDA-Public Use
  Company Number: None

PATIENT
  Sex: Female
  Weight: 69.7 kg

DRUGS (1)
  1. TAXOL [Suspect]
     Dosage: 147 MG

REACTIONS (11)
  - ANOREXIA [None]
  - BONE PAIN [None]
  - CONSTIPATION [None]
  - DRUG WITHDRAWAL SYNDROME [None]
  - FATIGUE [None]
  - FEELING ABNORMAL [None]
  - MUSCLE TWITCHING [None]
  - NAUSEA [None]
  - NEUROPATHY [None]
  - PAIN [None]
  - VOMITING [None]
